FAERS Safety Report 23853562 (Version 8)
Quarter: 2024Q3

REPORT INFORMATION
  Report Type: Spontaneous
  Country: US (occurrence: US)
  Receive Date: 20240514
  Receipt Date: 20240916
  Transmission Date: 20241016
  Serious: Yes (Hospitalization, Other)
  Sender: PHARMING GROUP
  Company Number: US-PHARMING-PHAUS2024000364

PATIENT

DRUGS (11)
  1. RUCONEST [Suspect]
     Active Substance: CONESTAT ALFA
     Indication: Hereditary angioedema
     Dosage: 4200 IU, AS NEEDED
     Route: 042
     Dates: start: 202308
  2. RUCONEST [Suspect]
     Active Substance: CONESTAT ALFA
     Dosage: 4200 IU, PRN
     Route: 042
     Dates: start: 20230818
  3. RUCONEST [Suspect]
     Active Substance: CONESTAT ALFA
     Dosage: 4200 IU, PRN
     Route: 042
     Dates: start: 202308
  4. RUCONEST [Suspect]
     Active Substance: CONESTAT ALFA
     Dosage: 4200 IU, PRN
     Route: 042
     Dates: start: 202308
  5. RUCONEST [Suspect]
     Active Substance: CONESTAT ALFA
     Dosage: 4200 IU, PRN
     Route: 042
     Dates: start: 202401
  6. RUCONEST [Suspect]
     Active Substance: CONESTAT ALFA
     Dosage: 4200 IU, PRN
     Route: 042
     Dates: start: 202308
  7. DIPHENHYDRAMINE [Concomitant]
     Active Substance: DIPHENHYDRAMINE
     Indication: Product used for unknown indication
  8. HEPARIN SODIUM [Concomitant]
     Active Substance: HEPARIN SODIUM
     Indication: Product used for unknown indication
  9. TAKHZYRO [Concomitant]
     Active Substance: LANADELUMAB-FLYO
     Indication: Product used for unknown indication
  10. GAMUNEX-C [Concomitant]
     Active Substance: HUMAN IMMUNOGLOBULIN G
     Indication: Hypergammaglobulinaemia
  11. BERINERT [Concomitant]
     Active Substance: HUMAN C1-ESTERASE INHIBITOR
     Indication: Product used for unknown indication

REACTIONS (20)
  - Renal haemorrhage [Unknown]
  - Pulmonary haemorrhage [Unknown]
  - Blindness [Unknown]
  - Pneumonia [Unknown]
  - Ear haemorrhage [Unknown]
  - Mouth haemorrhage [Unknown]
  - Eye haemorrhage [Unknown]
  - Epistaxis [Unknown]
  - Dyspnoea [Unknown]
  - Gastrointestinal infection [Unknown]
  - Infection [Unknown]
  - Haemorrhage [Unknown]
  - Stress [Unknown]
  - Injury [Unknown]
  - Transfusion [Unknown]
  - Gastrointestinal tube insertion [Unknown]
  - Central venous catheterisation [Unknown]
  - Weight increased [Unknown]
  - Condition aggravated [Unknown]
  - Product use in unapproved indication [Unknown]

NARRATIVE: CASE EVENT DATE: 20240710
